FAERS Safety Report 6259045-1 (Version None)
Quarter: 2009Q3

REPORT INFORMATION
  Report Type: 
  Country: None (occurrence: None)
  Receive Date: 20090707
  Receipt Date: 20090630
  Transmission Date: 20100115
  Serious: Yes (Other)
  Sender: FDA-Public Use
  Company Number: PHHY2009BR26882

PATIENT
  Sex: Male

DRUGS (1)
  1. CODATEN [Suspect]
     Indication: LIGAMENT DISORDER
     Dosage: 50 MG,
     Route: 048

REACTIONS (6)
  - ASTHENIA [None]
  - ASTHENOPIA [None]
  - HALLUCINATION [None]
  - HYPOTENSION [None]
  - MALAISE [None]
  - SOMNOLENCE [None]
